FAERS Safety Report 9264343 (Version 1)
Quarter: 2013Q2

REPORT INFORMATION
  Report Type: Spontaneous
  Country: US (occurrence: US)
  Receive Date: 20130430
  Receipt Date: 20130430
  Transmission Date: 20140414
  Serious: Yes (Other)
  Sender: FDA-Public Use
  Company Number: US-ABBOTT-13P-163-1083190-00

PATIENT
  Age: 64 Year
  Sex: Female

DRUGS (4)
  1. IR NIACIN [Suspect]
     Indication: TYPE IIA HYPERLIPIDAEMIA
  2. ATORVASTATIN [Suspect]
     Indication: TYPE IIA HYPERLIPIDAEMIA
  3. CHOLESTYRAMINE [Suspect]
     Indication: TYPE IIA HYPERLIPIDAEMIA
  4. ROSUVASTATIN [Suspect]
     Indication: TYPE IIA HYPERLIPIDAEMIA

REACTIONS (1)
  - Xanthoma [Unknown]
